FAERS Safety Report 23837397 (Version 2)
Quarter: 2024Q3

REPORT INFORMATION
  Report Type: Spontaneous
  Country: FR (occurrence: FR)
  Receive Date: 20240509
  Receipt Date: 20240924
  Transmission Date: 20241016
  Serious: Yes (Hospitalization)
  Sender: TEVA
  Company Number: None

PATIENT
  Age: 87 Year
  Sex: Male

DRUGS (2)
  1. PREGABALIN [Suspect]
     Active Substance: PREGABALIN
     Indication: Product dispensing error
     Dosage: TIME INTERVAL: TOTAL: THE MORNING
     Route: 048
     Dates: start: 20240328, end: 20240328
  2. PREGABALIN [Suspect]
     Active Substance: PREGABALIN
     Indication: Product dispensing error
     Dosage: TIME INTERVAL: TOTAL: THE MORNING
     Route: 048
     Dates: start: 20240328, end: 20240328

REACTIONS (3)
  - Somnolence [Recovered/Resolved]
  - Generalised tonic-clonic seizure [Recovered/Resolved]
  - Accidental overdose [Recovered/Resolved]

NARRATIVE: CASE EVENT DATE: 20240328
